FAERS Safety Report 5027433-7 (Version None)
Quarter: 2006Q2

REPORT INFORMATION
  Report Type: 
  Country: None (occurrence: None)
  Receive Date: 20060501
  Receipt Date: 20060120
  Transmission Date: 20061013
  Serious: No
  Sender: FDA-Public Use
  Company Number: 200610426BWH

PATIENT
  Age: 59 Year
  Sex: Male

DRUGS (4)
  1. NEXAVAR [Suspect]
     Indication: RENAL CELL CARCINOMA STAGE UNSPECIFIED
     Dosage: 400 MG, BID, ORAL
     Route: 048
     Dates: start: 20060116
  2. OXYCODONE HCL [Concomitant]
  3. PERCOCET [Concomitant]
  4. VITAMINS [Concomitant]

REACTIONS (4)
  - DYSPHONIA [None]
  - HYPERSENSITIVITY [None]
  - POSTNASAL DRIP [None]
  - WEIGHT DECREASED [None]
